FAERS Safety Report 5140490-2 (Version None)
Quarter: 2006Q4

REPORT INFORMATION
  Report Type: 
  Country: None (occurrence: None)
  Receive Date: 20061025
  Receipt Date: 20061025
  Transmission Date: 20070319
  Serious: Yes (Hospitalization)
  Sender: FDA-Public Use
  Company Number: None

PATIENT
  Age: 70 Year
  Sex: Female
  Weight: 50.8 kg

DRUGS (18)
  1. CEFUROXIME [Suspect]
     Indication: BRONCHITIS
     Dosage: PO
     Route: 048
     Dates: start: 20060619, end: 20060620
  2. CEFUROXIME [Suspect]
     Indication: SINUSITIS
     Dosage: PO
     Route: 048
     Dates: start: 20060619, end: 20060620
  3. VALSARTAN [Suspect]
     Indication: HYPERTENSION
     Dosage: 80 MG  DAILY  PO
     Route: 048
  4. PREDNISONE TAB [Concomitant]
  5. PIROXICAM [Concomitant]
  6. METHOTREXATE [Concomitant]
  7. FOLIC ACID [Concomitant]
  8. ASPIRIN [Concomitant]
  9. CALCIUM [Concomitant]
  10. MULTI-VITAMIN [Concomitant]
  11. NORVASC [Concomitant]
  12. INDERAL [Concomitant]
  13. SYNTHROID [Concomitant]
  14. PLAVIX [Concomitant]
  15. PRAVACHOL [Concomitant]
  16. DIOVAN [Concomitant]
  17. MIRTAZAPINE [Concomitant]
  18. LORAZEPAM [Concomitant]

REACTIONS (10)
  - ANAEMIA [None]
  - AZOTAEMIA [None]
  - CLOSTRIDIUM DIFFICILE COLITIS [None]
  - CONFUSIONAL STATE [None]
  - FATIGUE [None]
  - MENTAL STATUS CHANGES [None]
  - METABOLIC ACIDOSIS [None]
  - NAUSEA [None]
  - PYREXIA [None]
  - RENAL FAILURE ACUTE [None]
